FAERS Safety Report 15309433 (Version 1)
Quarter: 2018Q3

REPORT INFORMATION
  Report Type: Spontaneous
  Country: US (occurrence: US)
  Receive Date: 20180811
  Receipt Date: 20180811
  Transmission Date: 20181010
  Serious: Yes (Hospitalization, Disabling)
  Sender: FDA-Public Use
  Company Number: None

PATIENT
  Age: 58 Year
  Sex: Female
  Weight: 81 kg

DRUGS (7)
  1. TIUEJO [Concomitant]
  2. NOVOLOG [Concomitant]
     Active Substance: INSULIN ASPART
  3. MULTIVITAMIN [Concomitant]
     Active Substance: VITAMINS
  4. LOSARTIN [Concomitant]
     Active Substance: LOSARTAN
  5. AMOLODEPINE [Concomitant]
  6. FARXIGA [Suspect]
     Active Substance: DAPAGLIFLOZIN PROPANEDIOL
     Indication: DIABETES MELLITUS
     Route: 048
     Dates: start: 20141112, end: 20150318
  7. PRAVASTATIN. [Concomitant]
     Active Substance: PRAVASTATIN

REACTIONS (3)
  - Seizure [None]
  - Ketoacidosis [None]
  - Wrong drug administered [None]

NARRATIVE: CASE EVENT DATE: 20180318
